FAERS Safety Report 6229936-6 (Version None)
Quarter: 2009Q2

REPORT INFORMATION
  Report Type: 
  Country: None (occurrence: None)
  Receive Date: 20090615
  Receipt Date: 20090605
  Transmission Date: 20091009
  Serious: Yes (Hospitalization, Other)
  Sender: FDA-Public Use
  Company Number: US-ELI_LILLY_AND_COMPANY-US200906001496

PATIENT
  Sex: Male
  Weight: 181.41 kg

DRUGS (4)
  1. BYETTA [Suspect]
     Indication: TYPE 2 DIABETES MELLITUS
     Dosage: 5 UG, 2/D
     Route: 058
     Dates: start: 20090301, end: 20090401
  2. BYETTA [Suspect]
     Dosage: 10 UG, 2/D
     Route: 058
     Dates: start: 20090401, end: 20090501
  3. BYETTA [Suspect]
     Dosage: 10 UG, 2/D
     Route: 058
     Dates: start: 20090501, end: 20090501
  4. COUMADIN [Concomitant]
     Indication: ATRIAL FIBRILLATION
     Dosage: 5 MG, DAILY (1/D)
     Route: 048
     Dates: end: 20090501

REACTIONS (5)
  - ATRIAL FIBRILLATION [None]
  - POISONING [None]
  - RASH GENERALISED [None]
  - SKIN NECROSIS [None]
  - WEIGHT DECREASED [None]
